FAERS Safety Report 14601399 (Version 1)
Quarter: 2018Q1

REPORT INFORMATION
  Report Type: Report from Study
  Country: None (occurrence: CA)
  Receive Date: 20180305
  Receipt Date: 20180305
  Transmission Date: 20180509
  Serious: Yes (Other)
  Sender: FDA-Public Use
  Company Number: CA-ABBVIE-17P-028-1947000-00

PATIENT
  Sex: Female

DRUGS (3)
  1. METOPROLOL. [Concomitant]
     Active Substance: METOPROLOL
     Dosage: 50MG IN THE MORNING AND 25 MG IN THE EVENING
     Route: 065
     Dates: start: 201704
  2. METOPROLOL. [Concomitant]
     Active Substance: METOPROLOL
     Indication: NEPHROPATHY
     Dosage: 15MG IN THE MORNING AND 50 MG AT NIGHT
     Route: 048
     Dates: end: 201704
  3. HUMIRA [Suspect]
     Active Substance: ADALIMUMAB
     Indication: ANKYLOSING SPONDYLITIS
     Route: 058
     Dates: start: 20110809

REACTIONS (3)
  - Chronic kidney disease [Not Recovered/Not Resolved]
  - Renal cyst [Not Recovered/Not Resolved]
  - Hypotension [Recovering/Resolving]

NARRATIVE: CASE EVENT DATE: 2017
